FAERS Safety Report 9132354 (Version 2)
Quarter: 2013Q1

REPORT INFORMATION
  Report Type: Spontaneous
  Country: US (occurrence: US)
  Receive Date: 20130301
  Receipt Date: 20130311
  Transmission Date: 20140127
  Serious: Yes (Other)
  Sender: FDA-Public Use
  Company Number: PHEH2013US004685

PATIENT
  Sex: Female

DRUGS (1)
  1. GLEEVEC [Suspect]
     Indication: MESOTHELIOMA
     Dosage: 400 MG, DAILY
     Route: 048

REACTIONS (7)
  - Rheumatoid arthritis [Recovered/Resolved]
  - Oedema peripheral [Recovered/Resolved]
  - Pain in extremity [Recovered/Resolved]
  - Mobility decreased [Recovered/Resolved]
  - Red blood cell sedimentation rate increased [Unknown]
  - Peritoneal mesothelioma malignant [Unknown]
  - Malignant neoplasm progression [Unknown]
